FAERS Safety Report 23347947 (Version 1)
Quarter: 2023Q4

REPORT INFORMATION
  Report Type: Spontaneous
  Country: US (occurrence: None)
  Receive Date: 20231228
  Receipt Date: 20231228
  Transmission Date: 20240110
  Serious: Yes (Hospitalization)
  Sender: FDA-Public Use
  Company Number: None

PATIENT
  Age: 80 Year
  Sex: Male
  Weight: 99.7 kg

DRUGS (2)
  1. LEUPROLIDE ACETATE [Suspect]
     Active Substance: LEUPROLIDE ACETATE
     Dates: end: 20230104
  2. NIRAPARIB TOSYLATE MONOHYDRATE [Suspect]
     Active Substance: NIRAPARIB TOSYLATE MONOHYDRATE
     Dates: end: 20210702

REACTIONS (9)
  - Weight increased [None]
  - Oedema peripheral [None]
  - Cardiac failure congestive [None]
  - Blister [None]
  - Bradycardia [None]
  - Effusion [None]
  - Peripheral venous disease [None]
  - Anaemia [None]
  - Renal failure [None]

NARRATIVE: CASE EVENT DATE: 20231202
